FAERS Safety Report 7713011-5 (Version None)
Quarter: 2011Q3

REPORT INFORMATION
  Report Type: 
  Country: None (occurrence: None)
  Receive Date: 20110826
  Receipt Date: 20110818
  Transmission Date: 20111222
  Serious: Yes (Hospitalization)
  Sender: FDA-Public Use
  Company Number: ES-PERRIGO-11ES006732

PATIENT
  Age: 58 Year
  Sex: Female

DRUGS (2)
  1. DEXCHLORPHENIRAMINE MALEATE [Suspect]
     Indication: PRODUCT USED FOR UNKNOWN INDICATION
     Dosage: UNK
     Route: 065
  2. ACETAMINOPHEN [Suspect]
     Indication: OSTEOARTHRITIS
     Dosage: 650MG, ONCE A WEEK FOR YEARS PER DAY BEFORE ALI
     Route: 048

REACTIONS (1)
  - ACUTE HEPATIC FAILURE [None]
